FAERS Safety Report 9457528 (Version 1)
Quarter: 2013Q3

REPORT INFORMATION
  Report Type: Spontaneous
  Country: US (occurrence: None)
  Receive Date: 20130812
  Receipt Date: 20130812
  Transmission Date: 20140515
  Serious: Yes (Hospitalization, Disabling)
  Sender: FDA-Public Use
  Company Number: None

PATIENT
  Age: 52 Year
  Sex: Female
  Weight: 63.5 kg

DRUGS (1)
  1. CHANTIX [Suspect]
     Indication: SMOKING CESSATION THERAPY
     Route: 048

REACTIONS (8)
  - Paraesthesia [None]
  - Blepharospasm [None]
  - Dysphemia [None]
  - Gait disturbance [None]
  - Paraplegia [None]
  - Blindness unilateral [None]
  - Dysuria [None]
  - Multiple sclerosis [None]
